FAERS Safety Report 13193624 (Version 2)
Quarter: 2017Q1

REPORT INFORMATION
  Report Type: Spontaneous
  Country: FR (occurrence: FR)
  Receive Date: 20170207
  Receipt Date: 20170221
  Transmission Date: 20170428
  Serious: Yes (Other)
  Sender: FDA-Public Use
  Company Number: FR-REGENERON PHARMACEUTICALS, INC.-2017-11362

PATIENT

DRUGS (3)
  1. EYLEA [Suspect]
     Active Substance: AFLIBERCEPT
     Indication: AGE-RELATED MACULAR DEGENERATION
     Dosage: 0.05 ML. PATINET HAD RECEIVED 4 INJECTIONS DURING PREVIOUS 6 MONTHS
     Route: 031
  2. BETADINE [Concomitant]
     Active Substance: POVIDONE-IODINE
     Indication: PROPHYLAXIS
  3. EYLEA [Suspect]
     Active Substance: AFLIBERCEPT
     Dosage: LAST INJECTION PRIOR TO EVENT
     Route: 031
     Dates: start: 20161122, end: 20161122

REACTIONS (5)
  - Anterior chamber disorder [Unknown]
  - Keratitis [Unknown]
  - Visual acuity reduced [Unknown]
  - Hypertonia [Unknown]
  - Vitreous disorder [Recovered/Resolved]

NARRATIVE: CASE EVENT DATE: 20161125
